FAERS Safety Report 8062719 (Version 2)
Quarter: 2014Q4

REPORT INFORMATION
  Report Type: Spontaneous
  Country: US (occurrence: US)
  Receive Date: 20110801
  Receipt Date: 20141110
  Transmission Date: 20150529
  Serious: Yes (Other)
  Sender: FDA-Public Use
  Company Number: US-ROCHE-760348

PATIENT
  Age: 34 Year
  Sex: Female
  Weight: 83.9 kg

DRUGS (3)
  1. ACCUTANE [Suspect]
     Active Substance: ISOTRETINOIN
     Route: 065
     Dates: start: 20030730, end: 20030903
  2. ACCUTANE [Suspect]
     Active Substance: ISOTRETINOIN
     Route: 065
  3. ACCUTANE [Suspect]
     Active Substance: ISOTRETINOIN
     Indication: ACNE
     Route: 065
     Dates: start: 200201, end: 200209

REACTIONS (8)
  - Crohn^s disease [Unknown]
  - Inflammatory bowel disease [Unknown]
  - Abdominal pain [Unknown]
  - Blood cholesterol increased [Unknown]
  - Peptic ulcer [Unknown]
  - Irritable bowel syndrome [Unknown]
  - Arthralgia [Unknown]
  - Rectal haemorrhage [Unknown]

NARRATIVE: CASE EVENT DATE: 200405
